FAERS Safety Report 22001086 (Version 5)
Quarter: 2023Q2

REPORT INFORMATION
  Report Type: Spontaneous
  Country: US (occurrence: US)
  Receive Date: 20230216
  Receipt Date: 20230510
  Transmission Date: 20230722
  Serious: Yes (Other)
  Sender: FDA-Public Use
  Company Number: US-PFIZER INC-PV202300023823

PATIENT
  Age: 77 Year
  Sex: Male

DRUGS (4)
  1. BRAFTOVI [Suspect]
     Active Substance: ENCORAFENIB
     Indication: Metastasis
     Dosage: 375 MG, CYCLIC (TAKE 5 CAPSULES; DAILY; 3 WEEK ON 1 WEEK OFF)
     Route: 048
  2. BRAFTOVI [Suspect]
     Active Substance: ENCORAFENIB
     Dosage: 75 MG
  3. MEKTOVI [Suspect]
     Active Substance: BINIMETINIB
     Indication: Metastasis
     Dosage: 30 MG, CYCLIC (IN THE MORNING AND AT BEDTIME (3 WEEKS ON 1 WEEK OFF)
     Route: 048
  4. MEKTOVI [Suspect]
     Active Substance: BINIMETINIB
     Dosage: 15 MG

REACTIONS (6)
  - Cataract [Unknown]
  - Off label use [Unknown]
  - Product use issue [Unknown]
  - Off label use [Unknown]
  - Muscle spasms [Unknown]
  - Visual impairment [Unknown]
